FAERS Safety Report 10647584 (Version 3)
Quarter: 2015Q1

REPORT INFORMATION
  Report Type: Spontaneous
  Country: US (occurrence: US)
  Receive Date: 20141211
  Receipt Date: 20150122
  Transmission Date: 20150720
  Serious: Yes (Disabling, Other)
  Sender: FDA-Public Use
  Company Number: US-ALLERGAN-1425062US

PATIENT
  Age: 30 Year
  Sex: Male

DRUGS (4)
  1. VEXOL [Concomitant]
     Active Substance: RIMEXOLONE
     Dosage: UNK
     Route: 047
     Dates: start: 20141202
  2. PRED FORTE [Suspect]
     Active Substance: PREDNISOLONE ACETATE
     Indication: CORNEAL TRANSPLANT
     Dosage: 1 GTT 6 TIMES/DAY
     Route: 047
     Dates: start: 201304, end: 20141202
  3. COMBIGAN[R] [Suspect]
     Active Substance: BRIMONIDINE TARTRATE\TIMOLOL MALEATE
     Indication: BORDERLINE GLAUCOMA
     Dosage: 1 GTT, BID
     Route: 047
     Dates: start: 201304
  4. PRED FORTE [Suspect]
     Active Substance: PREDNISOLONE ACETATE
     Indication: TRANSPLANT REJECTION

REACTIONS (7)
  - Corneal oedema [Unknown]
  - Blindness unilateral [Recovering/Resolving]
  - Inappropriate schedule of drug administration [Unknown]
  - Blindness unilateral [Not Recovered/Not Resolved]
  - Off label use [Unknown]
  - Corneal scar [Unknown]
  - Impaired work ability [None]

NARRATIVE: CASE EVENT DATE: 20130722
